FAERS Safety Report 6674291-0 (Version None)
Quarter: 2010Q2

REPORT INFORMATION
  Report Type: 
  Country: None (occurrence: None)
  Receive Date: 20100409
  Receipt Date: 20100405
  Transmission Date: 20101027
  Serious: Yes (Death)
  Sender: FDA-Public Use
  Company Number: US-CELGENEUS-163-20785-10020743

PATIENT
  Sex: Male
  Weight: 88.53 kg

DRUGS (6)
  1. THALOMID [Suspect]
     Route: 048
     Dates: start: 20091204, end: 20100123
  2. THALOMID [Suspect]
     Indication: MYELOFIBROSIS
     Route: 048
     Dates: start: 20091113, end: 20091204
  3. THALOMID [Suspect]
  4. PROCRIT [Concomitant]
     Indication: DRUG USE FOR UNKNOWN INDICATION
     Route: 065
     Dates: start: 20091009, end: 20091224
  5. HYDREA [Concomitant]
     Indication: DRUG USE FOR UNKNOWN INDICATION
     Route: 065
  6. PREDNISONE TAB [Concomitant]
     Indication: DRUG USE FOR UNKNOWN INDICATION
     Route: 065

REACTIONS (3)
  - MYELOFIBROSIS [None]
  - NEOPLASM PROGRESSION [None]
  - RENAL FAILURE ACUTE [None]
